FAERS Safety Report 9133557 (Version 1)
Quarter: 2013Q1

REPORT INFORMATION
  Report Type: Report from Study
  Country: US (occurrence: US)
  Receive Date: 20130129
  Receipt Date: 20130129
  Transmission Date: 20140127
  Serious: No
  Sender: FDA-Public Use
  Company Number: US-ABBOTT-12P-163-0929113-00

PATIENT
  Age: 77 Year
  Sex: Female

DRUGS (9)
  1. HUMIRA 40 MG/ 0.8 ML PRE-FILLED SYRINGE [Suspect]
     Indication: CROHN^S DISEASE
     Dosage: 40MG WEEKLY STARTING 20 APR 2012
     Dates: start: 20120127
  2. APRISO [Concomitant]
     Indication: COLITIS ULCERATIVE
     Dosage: 8 PILLS DAILY
  3. RAMIPRIL [Concomitant]
     Indication: HYPERTENSION
     Dosage: 0.25MG DAILY
  4. MULTIVITAMIN [Concomitant]
     Indication: PRODUCT USED FOR UNKNOWN INDICATION
     Dosage: DAILY
  5. CALCIUM [Concomitant]
     Indication: MINERAL SUPPLEMENTATION
  6. VITAMIN D [Concomitant]
     Indication: PRODUCT USED FOR UNKNOWN INDICATION
  7. PROBIOTICS [Concomitant]
     Indication: PRODUCT USED FOR UNKNOWN INDICATION
  8. PREDNISONE [Concomitant]
     Indication: PRODUCT USED FOR UNKNOWN INDICATION
     Dates: start: 201201
  9. PREDNISONE [Concomitant]
     Dates: start: 20120425

REACTIONS (2)
  - Unevaluable event [Not Recovered/Not Resolved]
  - Drug ineffective [Not Recovered/Not Resolved]
